FAERS Safety Report 10923013 (Version 1)
Quarter: 2015Q1

REPORT INFORMATION
  Report Type: Spontaneous
  Country: US (occurrence: US)
  Receive Date: 20150317
  Receipt Date: 20150317
  Transmission Date: 20150721
  Serious: Yes (Hospitalization, Other)
  Sender: FDA-Public Use
  Company Number: US-BAXTER-2015BAX013164

PATIENT
  Age: 23 Year
  Sex: Male

DRUGS (1)
  1. GAMMAGARD S/D [Suspect]
     Active Substance: HUMAN IMMUNOGLOBULIN G
     Indication: BRUTON^S AGAMMAGLOBULINAEMIA
     Route: 042

REACTIONS (9)
  - Bacteraemia [Unknown]
  - Blood immunoglobulin G decreased [Unknown]
  - Gastric cancer stage I [Recovered/Resolved]
  - HIV infection [Unknown]
  - Infection [Unknown]
  - Iron deficiency anaemia [Unknown]
  - Helicobacter test positive [Unknown]
  - Cellulitis [Unknown]
  - Campylobacter infection [Unknown]
